FAERS Safety Report 10900587 (Version 14)
Quarter: 2016Q3

REPORT INFORMATION
  Report Type: Spontaneous
  Country: CA (occurrence: CA)
  Receive Date: 20150310
  Receipt Date: 20160912
  Transmission Date: 20161109
  Serious: Yes (Hospitalization, Other)
  Sender: FDA-Public Use
  Company Number: CA-ROCHE-1548179

PATIENT
  Age: 53 Year
  Sex: Male

DRUGS (6)
  1. XOLAIR [Suspect]
     Active Substance: OMALIZUMAB
     Route: 058
     Dates: start: 20150521
  2. XOLAIR [Suspect]
     Active Substance: OMALIZUMAB
     Route: 058
     Dates: start: 20150910
  3. XOLAIR [Suspect]
     Active Substance: OMALIZUMAB
     Route: 058
     Dates: start: 201512
  4. XOLAIR [Suspect]
     Active Substance: OMALIZUMAB
     Route: 058
     Dates: start: 20140522
  5. XOLAIR [Suspect]
     Active Substance: OMALIZUMAB
     Indication: ASTHMA
     Route: 058
     Dates: start: 201309
  6. XOLAIR [Suspect]
     Active Substance: OMALIZUMAB
     Route: 058
     Dates: start: 20131010

REACTIONS (22)
  - Asthma [Unknown]
  - Nasopharyngitis [Unknown]
  - Weight increased [Unknown]
  - Accident at work [Unknown]
  - Fatigue [Unknown]
  - Psoriasis [Unknown]
  - Fall [Unknown]
  - Dyspnoea [Recovering/Resolving]
  - Rales [Recovering/Resolving]
  - Nasal congestion [Unknown]
  - Headache [Unknown]
  - Blood pressure increased [Unknown]
  - Back pain [Unknown]
  - Blood pressure abnormal [Unknown]
  - Ligament sprain [Unknown]
  - Cough [Recovering/Resolving]
  - Pericarditis [Unknown]
  - Back disorder [Unknown]
  - Lung disorder [Unknown]
  - Snoring [Unknown]
  - Dizziness [Unknown]
  - Pleurisy [Unknown]

NARRATIVE: CASE EVENT DATE: 201311
